FAERS Safety Report 9300185 (Version 1)
Quarter: 2013Q2

REPORT INFORMATION
  Report Type: Report from Study
  Country: BR (occurrence: BR)
  Receive Date: 20130521
  Receipt Date: 20130521
  Transmission Date: 20140414
  Serious: Yes (Hospitalization, Other)
  Sender: FDA-Public Use
  Company Number: PHHY2013BR049891

PATIENT
  Sex: Female
  Weight: 65 kg

DRUGS (9)
  1. EXELON PATCH [Suspect]
     Indication: DEMENTIA
     Dosage: 4.6 MG, DAILY
     Route: 062
  2. RISPERIDONE [Suspect]
     Indication: SLEEP DISORDER
  3. TOLREST [Suspect]
     Indication: MOOD SWINGS
  4. NEOZINE [Concomitant]
     Indication: AGITATION
     Dosage: UNK
  5. SEROQUEL [Concomitant]
     Indication: SLEEP DISORDER
     Dosage: 25 MG, UNK
  6. NATRILIX [Concomitant]
     Indication: HYPERTENSION
     Dosage: UNK
  7. SYNTHROID [Concomitant]
     Dosage: UNK UKN, UNK
  8. ASPIRIN [Concomitant]
     Dosage: UNK
  9. ENALAPRIL [Concomitant]
     Indication: HYPERTENSION
     Dosage: UNK

REACTIONS (4)
  - Disorientation [Recovering/Resolving]
  - Psychomotor hyperactivity [Recovering/Resolving]
  - Urinary tract infection [Recovering/Resolving]
  - Insomnia [Recovering/Resolving]
